FAERS Safety Report 4978907-6 (Version None)
Quarter: 2006Q2

REPORT INFORMATION
  Report Type: 
  Country: None (occurrence: None)
  Receive Date: 20060421
  Receipt Date: 20060410
  Transmission Date: 20061013
  Serious: Yes (Other)
  Sender: FDA-Public Use
  Company Number: US-JNJFOC-20060404012

PATIENT
  Age: 18 Year
  Sex: Female

DRUGS (4)
  1. REMICADE [Suspect]
     Dosage: AT WEEK 6
     Route: 042
  2. REMICADE [Suspect]
     Dosage: AT WEEK 2
     Route: 042
  3. REMICADE [Suspect]
     Indication: CROHN'S DISEASE
     Dosage: AT WEEK 0
     Route: 042
  4. AZATHIOPRINE [Concomitant]
     Indication: CROHN'S DISEASE

REACTIONS (1)
  - PULMONARY EOSINOPHILIA [None]
